FAERS Safety Report 18067460 (Version 3)
Quarter: 2020Q4

REPORT INFORMATION
  Report Type: Report from Study
  Country: None (occurrence: US)
  Receive Date: 20200724
  Receipt Date: 20201008
  Transmission Date: 20210113
  Serious: Yes (Hospitalization)
  Sender: FDA-Public Use
  Company Number: US-ABBVIE-20K-163-3494889-00

PATIENT
  Sex: Female
  Weight: 72.64 kg

DRUGS (4)
  1. MESALAMINE DR [Concomitant]
     Active Substance: MESALAMINE
     Indication: COLITIS
  2. HUMIRA [Suspect]
     Active Substance: ADALIMUMAB
     Indication: CROHN^S DISEASE
  3. HUMIRA [Suspect]
     Active Substance: ADALIMUMAB
     Indication: RHEUMATOID ARTHRITIS
  4. HUMIRA [Suspect]
     Active Substance: ADALIMUMAB
     Indication: COLITIS ULCERATIVE
     Route: 058
     Dates: start: 20200503

REACTIONS (13)
  - Asthenia [Unknown]
  - Pain [Unknown]
  - Diarrhoea [Recovering/Resolving]
  - Rheumatoid arthritis [Recovering/Resolving]
  - Abdominal pain upper [Unknown]
  - Arthritis [Unknown]
  - Headache [Recovering/Resolving]
  - Pyrexia [Recovering/Resolving]
  - Pyrexia [Unknown]
  - Fatigue [Recovering/Resolving]
  - Nausea [Recovering/Resolving]
  - Arthropod bite [Recovering/Resolving]
  - Gastrointestinal disorder [Recovering/Resolving]

NARRATIVE: CASE EVENT DATE: 2020
